FAERS Safety Report 5150672-1 (Version None)
Quarter: 2006Q4

REPORT INFORMATION
  Report Type: 
  Country: None (occurrence: None)
  Receive Date: 20061114
  Receipt Date: 20061018
  Transmission Date: 20070319
  Serious: Yes (Hospitalization, Other)
  Sender: FDA-Public Use
  Company Number: FR-ABBOTT-06P-056-0347419-00

PATIENT
  Sex: Male

DRUGS (8)
  1. DEPAKENE [Suspect]
     Indication: EPILEPSY
     Route: 048
     Dates: start: 19810101, end: 20060912
  2. DEPAKENE [Suspect]
     Indication: BRAIN NEOPLASM
     Route: 048
     Dates: start: 20060913
  3. ENOXAPARIN SODIUM [Concomitant]
     Indication: DRUG USE FOR UNKNOWN INDICATION
     Route: 058
     Dates: start: 20060801
  4. ACETAMINOPHEN [Concomitant]
     Indication: PAIN
     Route: 048
     Dates: start: 20060801
  5. DESMOPRESSIN ACETATE [Concomitant]
     Indication: ANTIDIURETIC HORMONE ABNORMALITY
     Route: 048
  6. LACTULOSE [Concomitant]
     Indication: DRUG USE FOR UNKNOWN INDICATION
     Route: 048
  7. VENLAFAXINE HYDROCHLORIDE [Concomitant]
     Indication: DEPRESSION
     Route: 048
  8. ALPRAZOLAM [Concomitant]
     Indication: DRUG USE FOR UNKNOWN INDICATION
     Route: 048
     Dates: start: 20060801

REACTIONS (7)
  - AMMONIA INCREASED [None]
  - COMA [None]
  - EPILEPSY [None]
  - HYDROCEPHALUS [None]
  - NERVE ROOT LESION [None]
  - PARAPLEGIA [None]
  - SOMNOLENCE [None]
